FAERS Safety Report 9038274 (Version 2)
Quarter: 2013Q1

REPORT INFORMATION
  Report Type: Report from Study
  Country: None (occurrence: US)
  Receive Date: 20130129
  Receipt Date: 20130201
  Transmission Date: 20140127
  Serious: Yes (Death, Other)
  Sender: FDA-Public Use
  Company Number: US-ROCHE-1169860

PATIENT
  Age: 66 Year
  Sex: Female
  Weight: 78.09 kg

DRUGS (7)
  1. CAPECITABINE [Suspect]
     Indication: NEOPLASM MALIGNANT
     Route: 048
     Dates: start: 20101018
  2. CAPECITABINE [Suspect]
     Dosage: CYCLE 2, 1000MG EVERY MORNING AND 1500MG EVERY EVENING, 2 WEEK ON AND 1 WEEK OFF
     Route: 048
     Dates: end: 20110902
  3. ABRAXANE [Suspect]
     Indication: BREAST CANCER
     Route: 042
     Dates: start: 20101103, end: 20110209
  4. ADRIAMYCIN [Concomitant]
     Indication: METASTASES TO LIVER
     Route: 065
  5. ADRIAMYCIN [Concomitant]
     Indication: METASTASES TO LUNG
  6. CYTOXAN [Concomitant]
     Indication: METASTASES TO LUNG
     Route: 065
  7. CYTOXAN [Concomitant]
     Indication: METASTASES TO LIVER

REACTIONS (4)
  - Neutropenia [Unknown]
  - Pancytopenia [Recovered/Resolved]
  - Rash [Recovered/Resolved]
  - Death [Fatal]
